FAERS Safety Report 5354189-0 (Version None)
Quarter: 2007Q2

REPORT INFORMATION
  Report Type: 
  Country: None (occurrence: None)
  Receive Date: 20070521
  Receipt Date: 20070411
  Transmission Date: 20071010
  Serious: No
  Sender: FDA-Public Use
  Company Number: WAES 0704USA02184

PATIENT
  Age: 76 Year
  Sex: Female

DRUGS (10)
  1. JANUVIA [Suspect]
     Indication: DIABETES MELLITUS NON-INSULIN-DEPENDENT
     Dosage: 50 MG/DAILY/PO
     Route: 048
  2. . [Concomitant]
  3. DIOVAN [Concomitant]
  4. ECOTRIN [Concomitant]
  5. NORVASC [Concomitant]
  6. SYNTHROID [Concomitant]
  7. AMOXICILLIN TRIHYDRATE [Concomitant]
  8. GLYBURIDE [Concomitant]
  9. HYDROCHLOROTHIAZIDE [Concomitant]
  10. POTASSIUM CHLORIDE [Concomitant]

REACTIONS (3)
  - DIZZINESS [None]
  - MALAISE [None]
  - WRONG TECHNIQUE IN DRUG USAGE PROCESS [None]
